FAERS Safety Report 10374056 (Version 1)
Quarter: 2014Q3

REPORT INFORMATION
  Report Type: Spontaneous
  Country: JP (occurrence: JP)
  Receive Date: 20140810
  Receipt Date: 20140810
  Transmission Date: 20150326
  Serious: Yes (Other)
  Sender: FDA-Public Use
  Company Number: PHHY2014JP098126

PATIENT
  Age: 65 Year
  Sex: Male

DRUGS (1)
  1. GLIVEC [Suspect]
     Active Substance: IMATINIB MESYLATE
     Dosage: 300 MG, DAILY

REACTIONS (2)
  - Nausea [Unknown]
  - Convulsion [Unknown]
